FAERS Safety Report 12675849 (Version 2)
Quarter: 2016Q3

REPORT INFORMATION
  Report Type: Spontaneous
  Country: FR (occurrence: FR)
  Receive Date: 20160823
  Receipt Date: 20160824
  Transmission Date: 20161109
  Serious: Yes (Hospitalization)
  Sender: FDA-Public Use
  Company Number: FR-PACIRA PHARMACEUTICALS, INC.-2016DEPFR00685

PATIENT
  Age: 63 Year
  Sex: Female

DRUGS (21)
  1. DEPO-MEDROL [Concomitant]
     Active Substance: METHYLPREDNISOLONE ACETATE
     Dosage: 40 MG, 1X
     Route: 037
     Dates: start: 20160607, end: 20160607
  2. DEPO-MEDROL [Concomitant]
     Active Substance: METHYLPREDNISOLONE ACETATE
     Dosage: 40 MG, 1X
     Route: 037
     Dates: start: 20160629, end: 20160629
  3. DEPO-MEDROL [Concomitant]
     Active Substance: METHYLPREDNISOLONE ACETATE
     Dosage: 40 MG, 1X
     Route: 037
     Dates: start: 20160713, end: 20160713
  4. DECTANCYL [Concomitant]
     Active Substance: DEXAMETHASONE
     Dosage: 4MG BID DURING 5 DAYS
     Route: 065
     Dates: start: 20160614, end: 20160614
  5. METHOTREXATE. [Concomitant]
     Active Substance: METHOTREXATE
     Dosage: 15 MG, 1X
     Route: 037
     Dates: start: 20160713, end: 20160713
  6. METHYLPREDNISOLONE. [Concomitant]
     Active Substance: METHYLPREDNISOLONE
     Dosage: ON DAY 1 CYCLE 1 OF MVBP THERAPY. CYCLE 2 START: 15JUL2016
     Route: 042
     Dates: start: 20160615
  7. CYTARABINE SANDOZ [Suspect]
     Active Substance: CYTARABINE
     Dosage: 40 MG, 1X
     Dates: start: 20160610, end: 20160610
  8. METHOTREXATE. [Concomitant]
     Active Substance: METHOTREXATE
     Dosage: 15 MG, 1X
     Route: 037
     Dates: start: 20160607, end: 20160607
  9. RITUXIMAB [Concomitant]
     Active Substance: RITUXIMAB
     Dosage: ON DAY 1 OF EACH MVBP CYCLE. START DATE CYCLE 2: 15JUL2016
     Route: 042
     Dates: start: 20160615
  10. PREDNISONE. [Concomitant]
     Active Substance: PREDNISONE
     Dosage: ON DAYS 2-5 OF EACH MVBP CYCLE. DAY 1 CYCLE 2: 15JUL2016
     Route: 048
     Dates: start: 20160616
  11. DEPO-MEDROL [Concomitant]
     Active Substance: METHYLPREDNISOLONE ACETATE
     Dosage: 40 MG, 1X
     Route: 037
     Dates: start: 20160614, end: 20160614
  12. DECTANCYL [Concomitant]
     Active Substance: DEXAMETHASONE
     Dosage: 4MG BID DURING 5 DAYS
     Route: 065
     Dates: start: 20160629, end: 20160629
  13. VENTOLINE [Concomitant]
     Active Substance: ALBUTEROL
     Dosage: UNK UNK, UNK
  14. METHOTREXATE. [Concomitant]
     Active Substance: METHOTREXATE
     Dosage: ON DAY 1 AND 15 OF EACH MVBP CYCLE. START DATE CYCLE 2: 15JUL2016
     Route: 042
     Dates: start: 20160615
  15. DEPOCYT [Suspect]
     Active Substance: CYTARABINE
     Indication: METASTASES TO MENINGES
     Dosage: 50 MG, 1X
     Route: 037
     Dates: start: 20160614, end: 20160614
  16. DEPOCYT [Suspect]
     Active Substance: CYTARABINE
     Dosage: 50 MG, 1X
     Route: 037
     Dates: start: 20160629, end: 20160629
  17. DEPO-MEDROL [Concomitant]
     Active Substance: METHYLPREDNISOLONE ACETATE
     Dosage: 40 MG, 1X
     Route: 037
     Dates: start: 20160610, end: 20160610
  18. METHOTREXATE. [Concomitant]
     Active Substance: METHOTREXATE
     Dosage: 15 MG, 1X
     Route: 037
     Dates: start: 20160610, end: 20160610
  19. CYTARABINE SANDOZ [Suspect]
     Active Substance: CYTARABINE
     Indication: METASTASES TO MENINGES
     Dosage: 40 MG, 1X
     Dates: start: 20160607, end: 20160607
  20. ETOPOSIDE. [Concomitant]
     Active Substance: ETOPOSIDE
     Dosage: ON DAY 2 OF EACH MVBP CYCLE. DAY 1 CYCLE 1: 15JUL2016
     Route: 042
     Dates: start: 20160616
  21. CARMUSTINE [Concomitant]
     Active Substance: CARMUSTINE
     Dosage: ON DAY 3 OF EACH MVBP CYCLE. DAY 1 CYCLE 1: 15JUL2016
     Route: 042
     Dates: start: 20160617

REACTIONS (3)
  - Pachymeningitis [Recovering/Resolving]
  - Facial paralysis [Recovering/Resolving]
  - Cranial nerve disorder [Recovering/Resolving]

NARRATIVE: CASE EVENT DATE: 201607
